FAERS Safety Report 21779522 (Version 1)
Quarter: 2022Q4

REPORT INFORMATION
  Report Type: Spontaneous
  Country: RU (occurrence: RU)
  Receive Date: 20221226
  Receipt Date: 20221226
  Transmission Date: 20230112
  Serious: Yes (Other)
  Sender: FDA-Public Use
  Company Number: RU-002147023-NVSC2022RU296855

PATIENT
  Age: 40 Year
  Sex: Female

DRUGS (1)
  1. MIDOSTAURIN [Suspect]
     Active Substance: MIDOSTAURIN
     Indication: Acute myeloid leukaemia
     Dosage: 50 MG, BID
     Route: 065
     Dates: start: 202112, end: 202203

REACTIONS (4)
  - Acute myeloid leukaemia recurrent [Unknown]
  - COVID-19 [Unknown]
  - Exposure to SARS-CoV-2 [Unknown]
  - Off label use [Unknown]

NARRATIVE: CASE EVENT DATE: 20220201
